FAERS Safety Report 7113656-X (Version None)
Quarter: 2010Q4

REPORT INFORMATION
  Report Type: 
  Country: None (occurrence: None)
  Receive Date: 20101119
  Receipt Date: 20101109
  Transmission Date: 20110411
  Serious: Yes (Other)
  Sender: FDA-Public Use
  Company Number: GB-WATSON-2010-14771

PATIENT
  Age: 71 Year
  Sex: Male

DRUGS (8)
  1. SIMVASTATIN [Suspect]
     Indication: HYPERCHOLESTEROLAEMIA
     Dosage: 10 MG, DAILY
     Route: 048
     Dates: start: 20031212, end: 20060322
  2. SIMVASTATIN [Suspect]
     Dosage: 10 MG, DAILY
     Route: 048
     Dates: start: 20020210, end: 20030121
  3. ACETAMINOPHEN [Concomitant]
     Indication: PRODUCT USED FOR UNKNOWN INDICATION
     Dosage: 1 DF, QID
     Route: 048
     Dates: start: 20021015, end: 20060111
  4. ACETAMINOPHEN W/ PROPOXYPHENE HCL [Concomitant]
     Indication: PRODUCT USED FOR UNKNOWN INDICATION
     Dosage: 4 DF,
     Route: 048
     Dates: start: 20021015, end: 20060111
  5. ASPIRIN [Concomitant]
     Indication: TRANSIENT GLOBAL AMNESIA
     Dosage: 75 MG, DAILY
     Route: 048
     Dates: start: 20050715
  6. ASPIRIN [Concomitant]
     Indication: TRANSIENT ISCHAEMIC ATTACK
  7. DOTHIEPIN                          /00160402/ [Concomitant]
     Indication: PRODUCT USED FOR UNKNOWN INDICATION
     Dosage: UNK MG, DAILY
     Route: 048
     Dates: start: 20050314, end: 20060111
  8. HYPNOTICS AND SEDATIVES [Concomitant]
     Indication: PRODUCT USED FOR UNKNOWN INDICATION

REACTIONS (3)
  - ALOPECIA [None]
  - AMNESIA [None]
  - ERECTILE DYSFUNCTION [None]
